FAERS Safety Report 14201978 (Version 2)
Quarter: 2018Q1

REPORT INFORMATION
  Report Type: Spontaneous
  Country: MX (occurrence: MX)
  Receive Date: 20171117
  Receipt Date: 20180201
  Transmission Date: 20180508
  Serious: Yes (Death)
  Sender: FDA-Public Use
  Company Number: MX-PURDUE PHARMA-GBR-2017-0050762

PATIENT

DRUGS (1)
  1. SOLORO7 [Suspect]
     Active Substance: BUPRENORPHINE
     Indication: MUSCULOSKELETAL PAIN
     Dosage: 2 DF, UNK (5MG STRENGTH)
     Route: 062

REACTIONS (1)
  - Cardio-respiratory arrest [Fatal]
